FAERS Safety Report 7500149-0 (Version None)
Quarter: 2011Q2

REPORT INFORMATION
  Report Type: 
  Country: None (occurrence: None)
  Receive Date: 20110524
  Receipt Date: 20110517
  Transmission Date: 20111010
  Serious: Yes (Hospitalization)
  Sender: FDA-Public Use
  Company Number: US-ABBOTT-11P-163-0722356-00

PATIENT
  Sex: Male

DRUGS (10)
  1. FISH OIL [Concomitant]
     Indication: SUPPLEMENTATION THERAPY
  2. ALLEGRA [Concomitant]
     Indication: SEASONAL ALLERGY
  3. HUMIRA [Suspect]
     Indication: CROHN'S DISEASE
     Route: 058
     Dates: start: 20110401, end: 20110517
  4. XANAX [Concomitant]
     Indication: ANXIETY
  5. LIALDA [Concomitant]
     Indication: COLITIS
  6. TANDEM [Concomitant]
     Indication: COLITIS
  7. VITAMINS [Concomitant]
     Indication: COLITIS
  8. HUMIRA [Suspect]
     Indication: COLITIS
     Route: 058
     Dates: start: 20110419, end: 20110419
  9. VIT E [Concomitant]
     Indication: VITAMIN SUPPLEMENTATION
  10. PREDNISONE [Concomitant]
     Indication: COLITIS

REACTIONS (8)
  - DRUG INEFFECTIVE [None]
  - ABDOMINAL PAIN [None]
  - HAEMATOCHEZIA [None]
  - HAEMOGLOBIN DECREASED [None]
  - DIARRHOEA [None]
  - LARGE INTESTINAL ULCER HAEMORRHAGE [None]
  - DIZZINESS [None]
  - PNEUMONIA [None]
